FAERS Safety Report 5446671-2 (Version None)
Quarter: 2007Q3

REPORT INFORMATION
  Report Type: 
  Country: None (occurrence: None)
  Receive Date: 20070907
  Receipt Date: 20070828
  Transmission Date: 20080115
  Serious: Yes (Other)
  Sender: FDA-Public Use
  Company Number: BR-PFIZER INC-2007071971

PATIENT
  Sex: Male
  Weight: 70 kg

DRUGS (8)
  1. VIAGRA [Suspect]
     Indication: ERECTILE DYSFUNCTION
     Route: 048
  2. CIALIS [Concomitant]
     Route: 048
     Dates: start: 20070701, end: 20070701
  3. NORVASC [Concomitant]
     Route: 048
  4. METOPROLOL TARTRATE [Concomitant]
  5. ALDACTONE [Concomitant]
     Route: 048
  6. GLUCOFORMIN [Concomitant]
     Route: 048
  7. ALLOPURINOL [Concomitant]
     Route: 048
  8. OMEPRAZOLE [Concomitant]

REACTIONS (1)
  - BLOOD CREATININE INCREASED [None]
